FAERS Safety Report 4447767-4 (Version None)
Quarter: 2004Q3

REPORT INFORMATION
  Report Type: 
  Country: None (occurrence: None)
  Receive Date: 20040913
  Receipt Date: 20040902
  Transmission Date: 20050211
  Serious: Yes (Death, Hospitalization)
  Sender: FDA-Public Use
  Company Number: 200418838GDDC

PATIENT
  Age: 74 Year
  Sex: Male

DRUGS (1)
  1. FUROSEMIDE [Suspect]
     Indication: CARDIAC FAILURE

REACTIONS (6)
  - BONE MARROW DISORDER [None]
  - CEREBRAL HAEMORRHAGE [None]
  - HAEMORRHAGIC DIATHESIS [None]
  - IMMUNE SYSTEM DISORDER [None]
  - PURPURA [None]
  - THROMBOCYTOPENIA [None]
